FAERS Safety Report 8224274-4 (Version None)
Quarter: 2012Q1

REPORT INFORMATION
  Report Type: 
  Country: None (occurrence: None)
  Receive Date: 20120321
  Receipt Date: 20120314
  Transmission Date: 20120608
  Serious: Yes (Other)
  Sender: FDA-Public Use
  Company Number: US-ASTELLAS-2012US002829

PATIENT
  Sex: Male

DRUGS (1)
  1. ERLOTINIB HYDROCHLORIDE [Suspect]
     Indication: LUNG CARCINOMA CELL TYPE UNSPECIFIED STAGE 0
     Dosage: 150 MG, UID/QD
     Route: 048

REACTIONS (6)
  - ANXIETY [None]
  - THINKING ABNORMAL [None]
  - MUSCLE SPASMS [None]
  - CONVULSION [None]
  - VISION BLURRED [None]
  - DIARRHOEA [None]
